FAERS Safety Report 7753189-0 (Version None)
Quarter: 2011Q3

REPORT INFORMATION
  Report Type: 
  Country: None (occurrence: None)
  Receive Date: 20110915
  Receipt Date: 20110905
  Transmission Date: 20111222
  Serious: Yes (Hospitalization, Other)
  Sender: FDA-Public Use
  Company Number: PHHY2009FR03400

PATIENT
  Sex: Male

DRUGS (5)
  1. IMATINIB MESYLATE [Suspect]
     Indication: CHRONIC MYELOID LEUKAEMIA
     Dosage: 800 MG DAILY
     Dates: start: 20060127, end: 20071203
  2. IMATINIB MESYLATE [Suspect]
     Dosage: 600 MG DAILY
     Dates: start: 20071203, end: 20080430
  3. TASIGNA [Concomitant]
  4. SPRYCEL [Concomitant]
     Indication: CHRONIC MYELOID LEUKAEMIA
     Dosage: 100 MG, UNK
     Dates: start: 20090101
  5. IMATINIB MESYLATE [Suspect]
     Dosage: 400 MG DAILY
     Dates: start: 20080501, end: 20081005

REACTIONS (21)
  - PERIPHERAL SENSORIMOTOR NEUROPATHY [None]
  - URINARY TRACT INFECTION [None]
  - MUSCLE SPASMS [None]
  - ABDOMINAL DISCOMFORT [None]
  - DYSURIA [None]
  - FISTULA [None]
  - SENSORIMOTOR DISORDER [None]
  - HYPOREFLEXIA [None]
  - GAIT DISTURBANCE [None]
  - URINARY INCONTINENCE [None]
  - BLOOD CREATININE INCREASED [None]
  - ANAESTHESIA [None]
  - PARAESTHESIA [None]
  - DYSAESTHESIA [None]
  - MUSCULAR WEAKNESS [None]
  - DECREASED VIBRATORY SENSE [None]
  - PARAPARESIS [None]
  - GALLBLADDER DISORDER [None]
  - SENSORY DISTURBANCE [None]
  - AREFLEXIA [None]
  - HYPOAESTHESIA [None]
